FAERS Safety Report 5043692-9 (Version None)
Quarter: 2006Q2

REPORT INFORMATION
  Report Type: 
  Country: None (occurrence: None)
  Receive Date: 20060628
  Receipt Date: 20060619
  Transmission Date: 20061013
  Serious: Yes (Death, Hospitalization)
  Sender: FDA-Public Use
  Company Number: 2006PV015896

PATIENT
  Age: 74 Year
  Sex: Male
  Weight: 102.0593 kg

DRUGS (8)
  1. BYETTA [Suspect]
     Indication: DIABETES MELLITUS NON-INSULIN-DEPENDENT
     Dosage: 5 MCG; BID; SC
     Route: 058
     Dates: start: 20060207, end: 20060101
  2. GLYBURIDE [Concomitant]
  3. LASIX [Concomitant]
  4. FLOMAX [Concomitant]
  5. WARFARIN SODIUM [Concomitant]
  6. DIGOXIN [Concomitant]
  7. METOLAZONE [Concomitant]
  8. ENALAPRIL MALEATE [Concomitant]

REACTIONS (3)
  - BLOOD PRESSURE DECREASED [None]
  - PNEUMONIA STREPTOCOCCAL [None]
  - PULMONARY OEDEMA [None]
